FAERS Safety Report 6031103-6 (Version None)
Quarter: 2009Q1

REPORT INFORMATION
  Report Type: 
  Country: None (occurrence: None)
  Receive Date: 20090108
  Receipt Date: 20081222
  Transmission Date: 20090719
  Serious: Yes (Other)
  Sender: FDA-Public Use
  Company Number: FR-PFIZER INC-2009151383

PATIENT

DRUGS (8)
  1. HYDROXYZINE HCL [Suspect]
     Dosage: 25 MG, 2X/DAY
     Route: 048
     Dates: start: 20060530
  2. TRIMEPRAZINE TAB [Suspect]
     Dosage: 20 GTT, 1X/DAY
     Route: 048
     Dates: start: 20080101
  3. EFFEXOR [Suspect]
     Dosage: 75 MG, 2X/DAY
     Route: 048
     Dates: start: 20060530, end: 20071001
  4. EFFEXOR [Suspect]
     Dosage: 75 MG, 3X/DAY
     Route: 048
     Dates: start: 20071001, end: 20081202
  5. STRONTIUM RANELATE [Suspect]
     Dosage: 2 G, 1X/DAY
     Route: 048
     Dates: start: 20070701
  6. SERESTA [Concomitant]
     Dosage: UNK
     Dates: start: 20060530
  7. IMOVANE [Concomitant]
     Dosage: UNK
     Dates: start: 20060530
  8. ZYPREXA [Concomitant]
     Dosage: UNK
     Dates: start: 20060530

REACTIONS (1)
  - PANCREATITIS NECROTISING [None]
